FAERS Safety Report 7339251-5 (Version None)
Quarter: 2011Q1

REPORT INFORMATION
  Report Type: 
  Country: None (occurrence: None)
  Receive Date: 20110308
  Receipt Date: 20110223
  Transmission Date: 20110831
  Serious: Yes (Hospitalization, Other)
  Sender: FDA-Public Use
  Company Number: FR-ELI_LILLY_AND_COMPANY-FR201011002132

PATIENT
  Sex: Female

DRUGS (6)
  1. TRIMEPRAZINE TARTRATE [Concomitant]
     Indication: BIPOLAR I DISORDER
     Dosage: UNK, AS NEEDED
     Route: 048
  2. NOCTAMIDE [Concomitant]
     Indication: BIPOLAR I DISORDER
     Dosage: 25 MG, DAILY (1/D)
     Route: 048
     Dates: start: 20101019
  3. ECONAZOLE NITRATE [Concomitant]
     Dates: start: 20101018
  4. RISPERDAL [Concomitant]
     Indication: BIPOLAR I DISORDER
     Dosage: 2 MG, DAILY (1/D)
     Route: 048
     Dates: start: 20101002, end: 20101102
  5. TERCIAN [Concomitant]
     Dosage: 25 MG, 2/D
     Route: 048
     Dates: start: 20101019, end: 20101021
  6. CYMBALTA [Suspect]
     Indication: BIPOLAR I DISORDER
     Dosage: 60 MG, DAILY (1/D)
     Route: 048
     Dates: start: 20100930, end: 20101024

REACTIONS (3)
  - INTESTINAL OBSTRUCTION [None]
  - PANCREATIC DISORDER [None]
  - HEPATITIS [None]
